FAERS Safety Report 23941673 (Version 5)
Quarter: 2025Q1

REPORT INFORMATION
  Report Type: Spontaneous
  Country: US (occurrence: US)
  Receive Date: 20240605
  Receipt Date: 20250313
  Transmission Date: 20250408
  Serious: No
  Sender: BIOGEN
  Company Number: US-BIOGEN-2024BI01267680

PATIENT
  Age: 64 Year
  Sex: Female

DRUGS (11)
  1. VUMERITY [Suspect]
     Active Substance: DIROXIMEL FUMARATE
     Indication: Multiple sclerosis
     Route: 050
     Dates: start: 20240520
  2. VUMERITY [Suspect]
     Active Substance: DIROXIMEL FUMARATE
     Dosage: 2 VUMERITY PILLS IN THE MORNING AND 1 PILL AT NIGHT
     Route: 050
     Dates: start: 20240527
  3. VUMERITY [Suspect]
     Active Substance: DIROXIMEL FUMARATE
     Dosage: MAINTENANCE DOSE?462 MILLIGRAM
     Route: 050
  4. VUMERITY [Suspect]
     Active Substance: DIROXIMEL FUMARATE
     Route: 050
     Dates: start: 20240605
  5. VITAMIN D-400 [Concomitant]
     Route: 050
  6. SPIRONOLACTONE [Concomitant]
     Active Substance: SPIRONOLACTONE
     Route: 050
  7. B12 [Concomitant]
     Route: 050
  8. MAGNESIUM GLUCONATE [Concomitant]
     Active Substance: MAGNESIUM GLUCONATE
     Route: 050
  9. TYLENOL EXTRA STRENGTH [Concomitant]
     Active Substance: ACETAMINOPHEN
     Route: 050
  10. OMEGA 3 [Concomitant]
     Active Substance: CAPSAICIN
     Route: 050
  11. IBUPROFEN [Concomitant]
     Active Substance: IBUPROFEN
     Route: 050

REACTIONS (4)
  - Prescribed underdose [Not Recovered/Not Resolved]
  - Product dose omission issue [Unknown]
  - COVID-19 [Unknown]
  - Nausea [Unknown]

NARRATIVE: CASE EVENT DATE: 20240501
